FAERS Safety Report 4937021-6 (Version None)
Quarter: 2006Q1

REPORT INFORMATION
  Report Type: 
  Country: None (occurrence: None)
  Receive Date: 20060309
  Receipt Date: 20051222
  Transmission Date: 20060701
  Serious: Yes (Hospitalization)
  Sender: FDA-Public Use
  Company Number: FR-SANOFI-SYNTHELABO-A02200503404

PATIENT
  Age: 17 Year
  Sex: Female

DRUGS (4)
  1. ELOXATIN [Suspect]
     Indication: NEPHROBLASTOMA
     Route: 042
     Dates: start: 20051118, end: 20051118
  2. TAXOL [Suspect]
     Indication: NEPHROBLASTOMA
     Route: 042
     Dates: start: 20051118, end: 20051118
  3. ZOPHREN [Concomitant]
     Indication: DRUG USE FOR UNKNOWN INDICATION
     Route: 042
     Dates: start: 20051118, end: 20051122
  4. PLITICAN [Concomitant]
     Indication: DRUG USE FOR UNKNOWN INDICATION
     Route: 042
     Dates: start: 20051118, end: 20051122

REACTIONS (7)
  - DYSAESTHESIA [None]
  - DYSARTHRIA [None]
  - INTESTINAL OBSTRUCTION [None]
  - MUSCLE SPASMS [None]
  - PARAESTHESIA [None]
  - VISUAL DISTURBANCE [None]
  - VOMITING [None]
